FAERS Safety Report 13322768 (Version 1)
Quarter: 2017Q1

REPORT INFORMATION
  Report Type: Spontaneous
  Country: CH (occurrence: CH)
  Receive Date: 20170310
  Receipt Date: 20170310
  Transmission Date: 20170428
  Serious: Yes (Hospitalization)
  Sender: FDA-Public Use
  Company Number: CH-JNJFOC-20170310368

PATIENT
  Age: 36 Year
  Sex: Male

DRUGS (12)
  1. QUETIAPINE. [Suspect]
     Active Substance: QUETIAPINE
     Indication: BORDERLINE PERSONALITY DISORDER
     Route: 048
  2. VALIUM [Suspect]
     Active Substance: DIAZEPAM
     Indication: ANXIETY DISORDER
     Route: 048
  3. FLURAZEPAM [Suspect]
     Active Substance: FLURAZEPAM\FLURAZEPAM HYDROCHLORIDE
     Indication: SEDATIVE THERAPY
     Route: 048
  4. NOZINAN [Suspect]
     Active Substance: LEVOMEPROMAZINE
     Indication: DEPRESSION
     Route: 048
     Dates: start: 20150907, end: 20150907
  5. DAFALGAN [Suspect]
     Active Substance: ACETAMINOPHEN
     Indication: PAIN MANAGEMENT
     Route: 048
     Dates: start: 20150907, end: 20150907
  6. DOLOPHINE [Suspect]
     Active Substance: METHADONE HYDROCHLORIDE
     Indication: SUBSTANCE DEPENDENCE
     Route: 048
     Dates: start: 20150907, end: 20150907
  7. ENTUMIN [Suspect]
     Active Substance: CLOTHIAPINE
     Indication: ANXIETY DISORDER
     Route: 048
     Dates: start: 20150907, end: 20150907
  8. REMERON [Concomitant]
     Active Substance: MIRTAZAPINE
     Indication: ANTIDEPRESSANT THERAPY
     Route: 048
  9. AKINETON [Concomitant]
     Active Substance: BIPERIDEN HYDROCHLORIDE
     Indication: TREMOR
     Route: 048
  10. LYRICA [Concomitant]
     Active Substance: PREGABALIN
     Indication: ANXIETY DISORDER
     Route: 048
  11. ZALDIAR [Suspect]
     Active Substance: ACETAMINOPHEN\TRAMADOL HYDROCHLORIDE
     Indication: SUICIDAL IDEATION
     Route: 048
     Dates: start: 20150907, end: 20150907
  12. QUETIAPINE. [Suspect]
     Active Substance: QUETIAPINE
     Indication: BORDERLINE PERSONALITY DISORDER
     Route: 048

REACTIONS (2)
  - Intentional overdose [Recovered/Resolved]
  - Coma [Recovered/Resolved]

NARRATIVE: CASE EVENT DATE: 20150907
